FAERS Safety Report 9512736 (Version 2)
Quarter: 2013Q3

REPORT INFORMATION
  Report Type: Spontaneous
  Country: US (occurrence: US)
  Receive Date: 20130910
  Receipt Date: 20130910
  Transmission Date: 20140515
  Serious: No
  Sender: FDA-Public Use
  Company Number: US-ASTELLAS-2013US007924

PATIENT
  Age: 74 Year
  Sex: Male

DRUGS (2)
  1. XTANDI [Suspect]
     Indication: PROSTATE CANCER
     Dosage: 160 MG, UID/QD
     Route: 048
     Dates: start: 20130621
  2. XTANDI [Suspect]
     Dosage: 120 MG, UID/QD
     Route: 048

REACTIONS (2)
  - Constipation [Unknown]
  - Oedema peripheral [Unknown]
